FAERS Safety Report 19237277 (Version 1)
Quarter: 2021Q2

REPORT INFORMATION
  Report Type: Spontaneous
  Country: JP (occurrence: JP)
  Receive Date: 20210510
  Receipt Date: 20210510
  Transmission Date: 20210717
  Serious: Yes (Hospitalization, Other)
  Sender: FDA-Public Use
  Company Number: NVSJ2021JP006816

PATIENT
  Sex: Male

DRUGS (1)
  1. GLIVEC [Suspect]
     Active Substance: IMATINIB MESYLATE
     Indication: CHRONIC MYELOID LEUKAEMIA
     Dosage: UNK
     Route: 048

REACTIONS (7)
  - Second primary malignancy [Recovered/Resolved]
  - Deafness [Not Recovered/Not Resolved]
  - Haematuria [Unknown]
  - Renal cancer [Recovered/Resolved]
  - Eye haemorrhage [Unknown]
  - Otitis media [Unknown]
  - Alopecia [Unknown]
